FAERS Safety Report 8775519 (Version 1)
Quarter: 2012Q4

REPORT INFORMATION
  Report Type: Report from Study
  Country: US (occurrence: US)
  Receive Date: 20120909
  Receipt Date: 20120909
  Transmission Date: 20130627
  Serious: Yes (Other)
  Sender: FDA-Public Use
  Company Number: US-ABBOTT-12P-163-0976398-00

PATIENT
  Sex: Female

DRUGS (1)
  1. HUMIRA [Suspect]
     Indication: ANKYLOSING SPONDYLITIS
     Dates: start: 20080214, end: 200808

REACTIONS (5)
  - Lymphadenopathy [Recovered/Resolved]
  - Lymph gland infection [Recovered/Resolved]
  - Pyrexia [Recovered/Resolved]
  - Lymph node pain [Recovered/Resolved]
  - Injection site reaction [Unknown]
